FAERS Safety Report 25146251 (Version 1)
Quarter: 2025Q2

REPORT INFORMATION
  Report Type: Spontaneous
  Country: DE (occurrence: DE)
  Receive Date: 20250401
  Receipt Date: 20250401
  Transmission Date: 20250716
  Serious: Yes (Congenital Anomaly)
  Sender: MYLAN
  Company Number: DE-EMB-M202309488-1

PATIENT
  Sex: Female
  Weight: 2.95 kg

DRUGS (13)
  1. METOPROLOL [Suspect]
     Active Substance: METOPROLOL
     Indication: Hypertension
     Dosage: 50 MILLIGRAM, BID
     Dates: start: 202309, end: 202406
  2. NIFEDIPINE [Suspect]
     Active Substance: NIFEDIPINE
     Indication: Hypertension
     Dosage: 40-0-20 MG/D
     Dates: start: 202309, end: 202403
  3. NIFEDIPINE [Suspect]
     Active Substance: NIFEDIPINE
     Dosage: 30-0-20 MG/D
     Dates: start: 202404, end: 202404
  4. NIFEDIPINE [Suspect]
     Active Substance: NIFEDIPINE
     Dosage: 30-0-30 MG/D
     Dates: start: 202405, end: 202406
  5. MESALAMINE [Suspect]
     Active Substance: MESALAMINE
     Indication: Colitis ulcerative
     Dosage: 3000 MILLIGRAM, QD
     Dates: start: 202309, end: 202406
  6. FOLIC ACID [Concomitant]
     Active Substance: FOLIC ACID
     Indication: Prophylaxis of neural tube defect
     Dosage: UNK UNK, QD, + PREC
     Dates: start: 202309, end: 202311
  7. LEVOTHYROXINE SODIUM [Concomitant]
     Active Substance: LEVOTHYROXINE SODIUM
     Indication: Hypothyroidism
     Dosage: 112 MICROGRAM, QD
     Dates: start: 202309, end: 202406
  8. VITAMIN D3 [Concomitant]
     Active Substance: CHOLECALCIFEROL
     Indication: Vitamin D deficiency
     Dosage: 2000 INTERNATIONAL UNIT, QD
     Dates: start: 202309, end: 202311
  9. Salofalk [Concomitant]
     Indication: Colitis ulcerative
     Dosage: 1000 MILLIGRAM, QD
     Dates: start: 202402, end: 202402
  10. Salofalk [Concomitant]
     Dosage: 1000 MILLIGRAM, QD
     Dates: start: 202402, end: 202402
  11. Salofalk [Concomitant]
     Dosage: 1000 MILLIGRAM, QD
     Dates: start: 202404, end: 202405
  12. Salofalk [Concomitant]
     Dosage: 1000 MILLIGRAM, QD
     Dates: start: 202406, end: 202406
  13. Salofalk [Concomitant]
     Dosage: 1000 MILLIGRAM, QD
     Dates: start: 202406, end: 202406

REACTIONS (2)
  - Congenital anisocoria [Unknown]
  - Foetal exposure during pregnancy [Unknown]
